FAERS Safety Report 19955049 (Version 1)
Quarter: 2021Q4

REPORT INFORMATION
  Report Type: Spontaneous
  Country: JP (occurrence: JP)
  Receive Date: 20211014
  Receipt Date: 20211014
  Transmission Date: 20220303
  Serious: Yes (Hospitalization)
  Sender: FDA-Public Use
  Company Number: None

PATIENT
  Age: 77 Year
  Sex: Male
  Weight: 60 kg

DRUGS (23)
  1. CELECOXIB [Suspect]
     Active Substance: CELECOXIB
     Indication: Chondrocalcinosis pyrophosphate
     Dosage: 200 MG, 2X/DAY
     Route: 048
     Dates: start: 20210531, end: 20210611
  2. LOXOPROFEN [Suspect]
     Active Substance: LOXOPROFEN
     Indication: Chondrocalcinosis pyrophosphate
     Dosage: 60 MG, 3X/DAY
     Route: 048
     Dates: start: 20210518, end: 20210530
  3. VONOPRAZAN FUMARATE [Concomitant]
     Active Substance: VONOPRAZAN FUMARATE
     Dosage: 20 MG, 1X/DAY (AFTER BREAKFAST)
  4. BISOPROLOL FUMARATE [Concomitant]
     Active Substance: BISOPROLOL FUMARATE
     Dosage: 0.625 MG, 1X/DAY (AFTER BREAKFAST)
  5. ATORVASTATIN [Concomitant]
     Active Substance: ATORVASTATIN
     Dosage: 10 MG, 1X/DAY (AFTER BREAKFAST)
  6. EPINASTINE HYDROCHLORIDE [Concomitant]
     Active Substance: EPINASTINE HYDROCHLORIDE
     Dosage: 20 MG, 1X/DAY (AFTER BREAKFAST)
  7. ASPIRIN [Concomitant]
     Active Substance: ASPIRIN
     Dosage: 100 MG, 1X/DAY (AFTER BREAKFAST)
  8. REBAMIPIDE [Concomitant]
     Active Substance: REBAMIPIDE
     Dosage: 100 MG, 3X/DAY (AFTER EACH MEAL)
  9. FERRIC CITRATE ANHYDROUS [Concomitant]
     Active Substance: FERRIC CITRATE ANHYDROUS
     Dosage: 500 MG, 3X/DAY (IMMEDIATELY AFTER EACH MEAL)
  10. LANTHANUM CARBONATE [Concomitant]
     Active Substance: LANTHANUM CARBONATE
     Dosage: 500 MG, 3X/DAY (IMMEDIATELY AFTER EACH MEAL)
  11. EPERISONE HYDROCHLORIDE [Concomitant]
     Active Substance: EPERISONE HYDROCHLORIDE
     Dosage: 50 MG, 2X/DAY (AFTER BREAKFAST AND DINNER)
  12. CALONAL [Concomitant]
     Active Substance: ACETAMINOPHEN
     Indication: Pain
     Dosage: 400 MG, AS NEEDED
  13. ACETAMINOPHEN\TRAMADOL HYDROCHLORIDE [Concomitant]
     Active Substance: ACETAMINOPHEN\TRAMADOL HYDROCHLORIDE
     Indication: Pain
     Dosage: 1 DF, AS NEEDED
     Route: 048
     Dates: start: 20210518
  14. ACETAMINOPHEN\TRAMADOL HYDROCHLORIDE [Concomitant]
     Active Substance: ACETAMINOPHEN\TRAMADOL HYDROCHLORIDE
     Dosage: 1 DF, AS NEEDED
     Route: 048
     Dates: start: 20210609
  15. HYALURONATE SODIUM [Concomitant]
     Active Substance: HYALURONATE SODIUM
     Dosage: UNK, 3X/DAY (BOTH EYES)
     Route: 047
  16. MOXIFLOXACIN HYDROCHLORIDE [Concomitant]
     Active Substance: MOXIFLOXACIN HYDROCHLORIDE
     Dosage: UNK, 2X/DAY (BOTH EYES)
     Route: 047
  17. ETIZOLAM [Concomitant]
     Active Substance: ETIZOLAM
     Dosage: 0.5 MG, 1X/DAY (BEFORE BEDTIME)
  18. MIYA-BM [Concomitant]
     Active Substance: CLOSTRIDIUM BUTYRICUM SPORES STRAIN M-55
     Dosage: 3 DF, 3X/DAY (AFTER EACH MEAL)
  19. ROZEREM [Concomitant]
     Active Substance: RAMELTEON
     Dosage: 8 MG, 1X/DAY (BEFORE BEDTIME)
  20. BELSOMRA [Concomitant]
     Active Substance: SUVOREXANT
     Indication: Insomnia
     Dosage: UNK UNK, AS NEEDED
  21. CEFMETAZOLE [Concomitant]
     Active Substance: CEFMETAZOLE
     Route: 042
  22. SODIUM CHLORIDE [Concomitant]
     Active Substance: SODIUM CHLORIDE
     Route: 041
  23. FLURBIPROFEN AXETIL [Concomitant]
     Active Substance: FLURBIPROFEN AXETIL
     Route: 042

REACTIONS (1)
  - Small intestine ulcer [Recovering/Resolving]

NARRATIVE: CASE EVENT DATE: 20210615
